FAERS Safety Report 25927662 (Version 1)
Quarter: 2025Q4

REPORT INFORMATION
  Report Type: Spontaneous
  Country: NZ (occurrence: NZ)
  Receive Date: 20251016
  Receipt Date: 20251016
  Transmission Date: 20260118
  Serious: No
  Sender: ALKEM
  Company Number: NZ-ALKEM LABORATORIES LIMITED-NZ-ALKEM-2025-07663

PATIENT
  Age: 61 Year
  Sex: Male
  Weight: 60 kg

DRUGS (8)
  1. RIVAROXABAN [Interacting]
     Active Substance: RIVAROXABAN
     Indication: Atrial fibrillation
     Dosage: 20 MILLIGRAM, QD (WITH FOOD)
     Route: 065
     Dates: start: 202305
  2. RIVAROXABAN [Interacting]
     Active Substance: RIVAROXABAN
     Dosage: 10 MILLIGRAM, QD (REDUCED DOSE)
     Route: 065
     Dates: start: 20240913
  3. PRETOMANID [Interacting]
     Active Substance: PRETOMANID
     Indication: Tuberculosis
     Dosage: UNK
     Route: 065
     Dates: start: 20240803
  4. PRETOMANID [Interacting]
     Active Substance: PRETOMANID
     Dosage: 200 MILLIGRAM, QD
     Route: 065
     Dates: start: 20240821
  5. BEDAQUILINE [Concomitant]
     Active Substance: BEDAQUILINE
     Indication: Tuberculosis
     Dosage: UNK
     Route: 065
     Dates: start: 20240803
  6. CARBIMAZOLE [Concomitant]
     Active Substance: CARBIMAZOLE
     Indication: Graves^ disease
     Dosage: UNK
     Route: 065
     Dates: start: 20240710
  7. LINEZOLID [Concomitant]
     Active Substance: LINEZOLID
     Indication: Tuberculosis
     Dosage: UNK
     Route: 065
     Dates: start: 20240803
  8. Moxifoxacin [Concomitant]
     Indication: Tuberculosis
     Dosage: UNK
     Route: 065
     Dates: start: 20240803

REACTIONS (2)
  - Anticoagulation drug level increased [Recovering/Resolving]
  - Drug interaction [Unknown]
